FAERS Safety Report 21858741 (Version 3)
Quarter: 2024Q4

REPORT INFORMATION
  Report Type: Report from Study
  Country: US (occurrence: US)
  Receive Date: 20230113
  Receipt Date: 20241211
  Transmission Date: 20250115
  Serious: No
  Sender: NOVARTIS
  Company Number: US-002147023-NVSC2023US007516

PATIENT
  Sex: Male

DRUGS (1)
  1. ENTRESTO [Suspect]
     Active Substance: SACUBITRIL\VALSARTAN
     Indication: Cardiac failure
     Dosage: 1 DOSAGE FORM, UNKNOWN (24/26 MG)
     Route: 048
     Dates: start: 20210202

REACTIONS (3)
  - Viral infection [Recovered/Resolved]
  - Nausea [Unknown]
  - Hypotension [Unknown]
